FAERS Safety Report 21035238 (Version 2)
Quarter: 2022Q3

REPORT INFORMATION
  Report Type: Report from Study
  Country: PT (occurrence: PT)
  Receive Date: 20220701
  Receipt Date: 20220907
  Transmission Date: 20221026
  Serious: Yes (Hospitalization, Disabling, Other)
  Sender: FDA-Public Use
  Company Number: PT-NOVARTISPH-NVSC2021PT092927

PATIENT
  Age: 63 Year
  Sex: Male

DRUGS (18)
  1. LUTATHERA [Suspect]
     Active Substance: LUTETIUM OXODOTREOTIDE LU-177
     Indication: Gastroenteropancreatic neuroendocrine tumour disease
     Dosage: 199 MCI
     Route: 042
     Dates: start: 20190904
  2. LUTATHERA [Suspect]
     Active Substance: LUTETIUM OXODOTREOTIDE LU-177
     Dosage: 199 MCI
     Route: 042
     Dates: start: 20200213
  3. LUTATHERA [Suspect]
     Active Substance: LUTETIUM OXODOTREOTIDE LU-177
     Dosage: 198 MCI
     Route: 042
     Dates: start: 20200416
  4. LUTATHERA [Suspect]
     Active Substance: LUTETIUM OXODOTREOTIDE LU-177
     Dosage: 196 MCI
     Route: 042
     Dates: start: 20200805
  5. LUTATHERA [Suspect]
     Active Substance: LUTETIUM OXODOTREOTIDE LU-177
     Dosage: ONE DOSE OF LUTATHERA EVERY 8 WEEKS UP TO 4 DOSES
     Route: 065
  6. PALONOSETRON [Concomitant]
     Active Substance: PALONOSETRON
     Indication: Prophylaxis of nausea and vomiting
     Dosage: UNK
     Route: 042
     Dates: start: 20190904, end: 20190904
  7. PALONOSETRON [Concomitant]
     Active Substance: PALONOSETRON
     Dosage: 5 ML
     Route: 065
     Dates: start: 20200213, end: 20200213
  8. PALONOSETRON [Concomitant]
     Active Substance: PALONOSETRON
     Dosage: UNK
     Route: 065
     Dates: start: 20200416, end: 20200416
  9. PALONOSETRON [Concomitant]
     Active Substance: PALONOSETRON
     Dosage: UNK
     Route: 065
     Dates: start: 20200805, end: 20200805
  10. CLOBAZAM [Concomitant]
     Active Substance: CLOBAZAM
     Indication: Product used for unknown indication
     Dosage: UNK
     Route: 048
  11. AMINOPLASMAL HEPA [Concomitant]
     Indication: Nephropathy toxic
     Dosage: UNK
     Route: 042
     Dates: start: 20190904, end: 20190904
  12. AMINOPLASMAL HEPA [Concomitant]
     Dosage: UNK
     Route: 042
     Dates: start: 20200213, end: 20200213
  13. AMINOPLASMAL HEPA [Concomitant]
     Dosage: UNK
     Route: 042
     Dates: start: 20200416, end: 20200416
  14. AMINOPLASMAL HEPA [Concomitant]
     Dosage: UNK
     Route: 042
     Dates: start: 20200805, end: 20200805
  15. FUROSEMIDE [Concomitant]
     Active Substance: FUROSEMIDE
     Indication: Hydronephrosis
     Dosage: UNK
     Route: 042
     Dates: start: 20200416, end: 20200416
  16. METFORMIN [Concomitant]
     Active Substance: METFORMIN HYDROCHLORIDE
     Indication: Diabetes mellitus
     Dosage: UNK
     Route: 048
     Dates: start: 20211012
  17. HEMOFISSURAL [Concomitant]
     Indication: Anal fissure
     Dosage: UNK
     Route: 061
     Dates: start: 2020
  18. DILTIAZEM [Concomitant]
     Active Substance: DILTIAZEM
     Indication: Anal fissure
     Dosage: UNK
     Route: 061
     Dates: start: 20200618

REACTIONS (18)
  - Intestinal obstruction [Recovered/Resolved]
  - Nausea [Recovered/Resolved]
  - Abdominal pain [Recovering/Resolving]
  - Diarrhoea [Recovered/Resolved]
  - Vomiting [Recovering/Resolving]
  - Pyrexia [Recovered/Resolved]
  - Proctalgia [Recovered/Resolved]
  - Anal abscess [Recovered/Resolved]
  - Metastases to liver [Unknown]
  - Metastases to peritoneum [Unknown]
  - Neoplasm [Unknown]
  - Syncope [Recovered/Resolved]
  - Gastrointestinal disorder [Recovered/Resolved]
  - Anxiety [Recovered/Resolved]
  - Hyperhidrosis [Recovered/Resolved]
  - Malaise [Recovered/Resolved]
  - Flatulence [Recovered/Resolved]
  - Fatigue [Unknown]

NARRATIVE: CASE EVENT DATE: 20200416
